FAERS Safety Report 5728965-6 (Version None)
Quarter: 2008Q2

REPORT INFORMATION
  Report Type: 
  Country: None (occurrence: None)
  Receive Date: 20080506
  Receipt Date: 20080429
  Transmission Date: 20081010
  Serious: Yes (Other)
  Sender: FDA-Public Use
  Company Number: US-JNJFOC-20080500057

PATIENT
  Sex: Male

DRUGS (3)
  1. LEVAQUIN [Suspect]
     Indication: UPPER RESPIRATORY TRACT INFECTION
     Route: 048
  2. LEVAQUIN [Suspect]
     Route: 042
  3. TOPROL-XL [Concomitant]

REACTIONS (4)
  - BLOOD PRESSURE DECREASED [None]
  - COLD SWEAT [None]
  - NAUSEA [None]
  - PALPITATIONS [None]
